FAERS Safety Report 24208600 (Version 2)
Quarter: 2024Q3

REPORT INFORMATION
  Report Type: Report from Study
  Country: US (occurrence: US)
  Receive Date: 20240814
  Receipt Date: 20240918
  Transmission Date: 20241017
  Serious: Yes (Hospitalization, Other)
  Sender: ABBVIE
  Company Number: US-ABBVIE-5876462

PATIENT
  Sex: Male

DRUGS (1)
  1. VENCLEXTA [Suspect]
     Active Substance: VENETOCLAX
     Indication: Hypogammaglobulinaemia
     Route: 048
     Dates: start: 202405

REACTIONS (6)
  - Pulmonary thrombosis [Unknown]
  - Oedema peripheral [Unknown]
  - Abdominal discomfort [Unknown]
  - Scrotal oedema [Unknown]
  - Basal cell carcinoma [Unknown]
  - Taste disorder [Unknown]

NARRATIVE: CASE EVENT DATE: 20240101
